FAERS Safety Report 12764551 (Version 1)
Quarter: 2016Q3

REPORT INFORMATION
  Report Type: Spontaneous
  Country: GB (occurrence: GB)
  Receive Date: 20160920
  Receipt Date: 20160920
  Transmission Date: 20161109
  Serious: Yes (Other)
  Sender: FDA-Public Use
  Company Number: GB-009507513-1609GBR007542

PATIENT
  Age: 21 Year
  Sex: Female
  Weight: 75.74 kg

DRUGS (4)
  1. COD LIVER OIL [Concomitant]
     Active Substance: COD LIVER OIL
  2. ETONOGESTREL [Suspect]
     Active Substance: ETONOGESTREL
     Indication: CONTRACEPTION
     Route: 059
     Dates: start: 201505, end: 2016
  3. VITAMINS (UNSPECIFIED) [Concomitant]
     Active Substance: VITAMINS
  4. COUGH, COLD, AND FLU THERAPIES (UNSPECIFIED) [Concomitant]
     Active Substance: UNSPECIFIED INGREDIENT

REACTIONS (3)
  - Implant site pruritus [Unknown]
  - Implant site rash [Unknown]
  - Eczema [Unknown]

NARRATIVE: CASE EVENT DATE: 20150601
